FAERS Safety Report 13387182 (Version 1)
Quarter: 2017Q1

REPORT INFORMATION
  Report Type: Spontaneous
  Country: DE (occurrence: DE)
  Receive Date: 20170330
  Receipt Date: 20170330
  Transmission Date: 20170429
  Serious: Yes (Other)
  Sender: FDA-Public Use
  Company Number: DE-ABBVIE-17P-062-1922668-00

PATIENT
  Sex: Female

DRUGS (1)
  1. ERGENYL CHRONO [Suspect]
     Active Substance: VALPROIC ACID
     Indication: PRODUCT USED FOR UNKNOWN INDICATION
     Dosage: TABLET, EXTENDED RELEASE
     Route: 065

REACTIONS (2)
  - Seizure [Unknown]
  - Anticonvulsant drug level abnormal [Unknown]

NARRATIVE: CASE EVENT DATE: 2017
